FAERS Safety Report 9180957 (Version 3)
Quarter: 2014Q3

REPORT INFORMATION
  Report Type: Report from Study
  Country: AU (occurrence: AU)
  Receive Date: 20130322
  Receipt Date: 20140702
  Transmission Date: 20150326
  Serious: Yes (Hospitalization, Other)
  Sender: FDA-Public Use
  Company Number: PHHY2013AU027438

PATIENT
  Age: 49 Year
  Sex: Female

DRUGS (20)
  1. VALPROATE SODIUM. [Concomitant]
     Active Substance: VALPROATE SODIUM
     Indication: MOOD ALTERED
     Dosage: 1 G, BID
     Route: 048
  2. ATORVASTATIN [Concomitant]
     Active Substance: ATORVASTATIN
     Indication: BLOOD CHOLESTEROL INCREASED
     Dosage: 20 MG,DAILY
     Route: 048
  3. PANTOPRAZOLE [Concomitant]
     Active Substance: PANTOPRAZOLE SODIUM
     Indication: GASTROOESOPHAGEAL REFLUX DISEASE
     Dosage: 40 MG, DAILY
     Route: 048
  4. OLANZAPINE. [Concomitant]
     Active Substance: OLANZAPINE
     Indication: SCHIZOPHRENIA
     Dosage: 25 MG, DAILY
     Route: 048
     Dates: end: 201110
  5. OXYBUTYNIN [Concomitant]
     Active Substance: OXYBUTYNIN
     Indication: INCONTINENCE
     Dosage: 5 MG, BID
     Route: 048
  6. CORTICOSTEROIDS [Concomitant]
     Active Substance: CORTICOSTEROID NOS
  7. CLOZARIL [Suspect]
     Active Substance: CLOZAPINE
     Dosage: UNK
     Dates: end: 20130923
  8. ARIPIPRAZOLE [Concomitant]
     Active Substance: ARIPIPRAZOLE
     Indication: SCHIZOPHRENIA
     Dosage: 20 MG, DAILY
     Route: 048
  9. VALPROATE SODIUM. [Concomitant]
     Active Substance: VALPROATE SODIUM
     Dosage: 2.5 G, DAILY
     Route: 048
  10. SERETIDE [Concomitant]
     Active Substance: FLUTICASONE FUROATE\SALMETEROL XINAFOATE
     Dosage: 250/50 2 PUFFS BID
  11. CLOZARIL [Suspect]
     Active Substance: CLOZAPINE
     Dosage: INCREASED DOSE BY 12.5 MG GRADUALLY
     Dates: start: 20130313
  12. PALIPERIDONE [Concomitant]
     Active Substance: PALIPERIDONE
     Indication: SCHIZOPHRENIA
     Dosage: 100 MG, FOR 4 WEEKS
     Route: 030
     Dates: start: 201005
  13. CLOZARIL [Suspect]
     Active Substance: CLOZAPINE
     Dosage: UNK
     Dates: start: 20130913, end: 20130920
  14. CLOZARIL [Suspect]
     Active Substance: CLOZAPINE
     Dosage: UNK
     Dates: end: 20140614
  15. TIOTROPIUM [Concomitant]
     Active Substance: TIOTROPIUM
     Dosage: 18 UG, IN MORNING
  16. OMEPRAZOLE. [Concomitant]
     Active Substance: OMEPRAZOLE
     Indication: GASTROOESOPHAGEAL REFLUX DISEASE
     Dosage: 40 MG, (MANE)
     Route: 048
  17. ARIPIPRAZOLE [Concomitant]
     Active Substance: ARIPIPRAZOLE
     Indication: PSYCHOTIC DISORDER
  18. CLOZARIL [Suspect]
     Active Substance: CLOZAPINE
     Indication: SCHIZOPHRENIA
     Dosage: 550 MG, UNK
     Dates: start: 20060321, end: 20130310
  19. FISH OIL [Concomitant]
     Active Substance: FISH OIL
     Indication: SCHIZOPHRENIA
     Dosage: 3 G, DAILY
     Route: 048
  20. PREDNISOLONE. [Concomitant]
     Active Substance: PREDNISOLONE
     Dosage: 30 MG, IN MORNING
     Dates: start: 20140516

REACTIONS (14)
  - Lower respiratory tract infection [Recovering/Resolving]
  - Hostility [Recovering/Resolving]
  - Persecutory delusion [Recovering/Resolving]
  - Psychotic disorder [Recovering/Resolving]
  - Mania [Recovering/Resolving]
  - Aggression [Recovering/Resolving]
  - C-reactive protein increased [Recovering/Resolving]
  - Chronic obstructive pulmonary disease [Recovering/Resolving]
  - Mental impairment [Recovering/Resolving]
  - Paranoia [Recovering/Resolving]
  - Social avoidant behaviour [Recovering/Resolving]
  - Antipsychotic drug level decreased [Recovering/Resolving]
  - Schizophrenia [Recovering/Resolving]
  - Delusion [Recovering/Resolving]

NARRATIVE: CASE EVENT DATE: 201202
